FAERS Safety Report 25885665 (Version 4)
Quarter: 2025Q4

REPORT INFORMATION
  Report Type: Report from Study
  Country: CA (occurrence: CA)
  Receive Date: 20251006
  Receipt Date: 20251231
  Transmission Date: 20260117
  Serious: Yes (Other)
  Sender: TEVA
  Company Number: CA-TEVA-VS-3376106

PATIENT
  Age: 50 Year
  Sex: Female

DRUGS (5)
  1. AJOVY [Suspect]
     Active Substance: FREMANEZUMAB-VFRM
     Indication: Migraine prophylaxis
     Dosage: LAST DOSE ADMINISTERED DATE 2025-11-06, DIN:02509474, 225MG/1.5 ML
     Route: 058
     Dates: start: 20251106
  2. AJOVY [Suspect]
     Active Substance: FREMANEZUMAB-VFRM
     Indication: Migraine prophylaxis
     Dosage: LAST DOSE ADMINISTERED DATE: 2025-09-03, DIN: 02509474
     Route: 058
     Dates: start: 20250903
  3. AJOVY [Suspect]
     Active Substance: FREMANEZUMAB-VFRM
     Indication: Migraine prophylaxis
     Route: 058
     Dates: start: 2025
  4. NORTRIPTYLINE [Concomitant]
     Active Substance: NORTRIPTYLINE
     Indication: Product used for unknown indication
     Dosage: DISCONTINUED
  5. PREGABALIN [Concomitant]
     Active Substance: PREGABALIN
     Indication: Product used for unknown indication
     Dosage: DISCONTINUED

REACTIONS (10)
  - Abdominal pain [Not Recovered/Not Resolved]
  - Migraine [Unknown]
  - Inappropriate schedule of product administration [Unknown]
  - C-reactive protein increased [Unknown]
  - Abdominal discomfort [Unknown]
  - Constipation [Unknown]
  - Dermatitis [Unknown]
  - Injection site rash [Not Recovered/Not Resolved]
  - Syncope [Unknown]
  - Frequent bowel movements [Unknown]

NARRATIVE: CASE EVENT DATE: 20250101
